FAERS Safety Report 25436222 (Version 1)
Quarter: 2025Q2

REPORT INFORMATION
  Report Type: Report from Study
  Country: ZA (occurrence: ZA)
  Receive Date: 20250614
  Receipt Date: 20250614
  Transmission Date: 20250716
  Serious: Yes (Other)
  Sender: ALEXION PHARMACEUTICALS
  Company Number: ZA-AstraZeneca-CH-00889773A

PATIENT
  Age: 54 Year

DRUGS (7)
  1. BUDESONIDE\FORMOTEROL [Suspect]
     Active Substance: BUDESONIDE\FORMOTEROL
     Indication: Asthma
  2. Lipogen [Concomitant]
     Indication: Blood cholesterol
  3. ETORICOXIB [Concomitant]
     Active Substance: ETORICOXIB
  4. Topraz [Concomitant]
     Indication: Asthma
  5. Fenak mr [Concomitant]
  6. Allergex [Concomitant]
     Indication: Hypersensitivity
  7. PREDNISONE [Concomitant]
     Active Substance: PREDNISONE
     Indication: Hypersensitivity

REACTIONS (1)
  - Limb deformity [Unknown]
